FAERS Safety Report 11791215 (Version 2)
Quarter: 2016Q1

REPORT INFORMATION
  Report Type: Spontaneous
  Country: US (occurrence: US)
  Receive Date: 20151201
  Receipt Date: 20160204
  Transmission Date: 20160525
  Serious: No
  Sender: FDA-Public Use
  Company Number: US-TOLMAR INC.-1044865

PATIENT

DRUGS (2)
  1. LIDOCAINE AND PRILOCAINE [Suspect]
     Active Substance: LIDOCAINE\PRILOCAINE
     Indication: BIOPSY
     Route: 061
  2. LIDOCAINE AND PRILOCAINE [Suspect]
     Active Substance: LIDOCAINE\PRILOCAINE
     Indication: ANAESTHESIA PROCEDURE
     Route: 061

REACTIONS (1)
  - Drug ineffective [Unknown]
